FAERS Safety Report 22074588 (Version 1)
Quarter: 2023Q1

REPORT INFORMATION
  Report Type: Spontaneous
  Country: IN (occurrence: IN)
  Receive Date: 20230308
  Receipt Date: 20230308
  Transmission Date: 20230418
  Serious: Yes (Other)
  Sender: FDA-Public Use
  Company Number: IN-INSUD PHARMA-2302IN01290

PATIENT

DRUGS (1)
  1. PROGESTERONE [Suspect]
     Active Substance: PROGESTERONE
     Indication: Infertility female
     Dosage: 200 MG MONTHLY INTRAMUSCULAR INJECTIONS
     Route: 030

REACTIONS (8)
  - Embolia cutis medicamentosa [Recovered/Resolved with Sequelae]
  - Injection site ulcer [Recovered/Resolved with Sequelae]
  - Injection site pain [Recovered/Resolved with Sequelae]
  - Injection site discolouration [Recovered/Resolved with Sequelae]
  - Injection site exfoliation [Recovered/Resolved with Sequelae]
  - Eschar [Recovered/Resolved with Sequelae]
  - Impaired healing [Recovered/Resolved with Sequelae]
  - Injection site scar [Recovered/Resolved with Sequelae]
